FAERS Safety Report 15018370 (Version 1)
Quarter: 2018Q2

REPORT INFORMATION
  Report Type: Spontaneous
  Country: ES (occurrence: ES)
  Receive Date: 20180615
  Receipt Date: 20180615
  Transmission Date: 20180711
  Serious: Yes (Other)
  Sender: FDA-Public Use
  Company Number: ES-MYLANLABS-2018M1041086

PATIENT
  Age: 26 Year
  Sex: Male

DRUGS (1)
  1. KETAMINE [Suspect]
     Active Substance: KETAMINE
     Indication: PRODUCT USED FOR UNKNOWN INDICATION
     Dosage: FROM AGE 15 TO AGE 17 YEARS
     Route: 050

REACTIONS (2)
  - Cystitis [Unknown]
  - Drug abuse [Recovered/Resolved]
